FAERS Safety Report 6429268-7 (Version None)
Quarter: 2009Q4

REPORT INFORMATION
  Report Type: 
  Country: None (occurrence: None)
  Receive Date: 20091105
  Receipt Date: 20091029
  Transmission Date: 20100525
  Serious: Yes (Hospitalization)
  Sender: FDA-Public Use
  Company Number: PHHO2009IT12733

PATIENT
  Sex: Female

DRUGS (3)
  1. RAD 666 RAD+TAB [Suspect]
     Indication: METASTATIC RENAL CELL CARCINOMA
     Dosage: 10 MG
     Route: 048
     Dates: start: 20090730, end: 20091018
  2. DELTACORTENE [Concomitant]
     Indication: ATELECTASIS
  3. CIPROFLOXACINA [Concomitant]
     Indication: ATELECTASIS

REACTIONS (2)
  - PLEURODESIS [None]
  - RESPIRATORY DISORDER [None]
